FAERS Safety Report 4412014-6 (Version None)
Quarter: 2004Q3

REPORT INFORMATION
  Report Type: 
  Country: None (occurrence: None)
  Receive Date: 20040729
  Receipt Date: 20040729
  Transmission Date: 20050211
  Serious: Yes (Death, Hospitalization)
  Sender: FDA-Public Use
  Company Number: None

PATIENT
  Age: 83 Year
  Sex: Male
  Weight: 66.8 kg

DRUGS (13)
  1. AMIODARONE HCL [Suspect]
     Indication: ATRIAL FIBRILLATION
     Dosage: 200-400 MG DAILY
     Dates: end: 20040418
  2. ALBUTEROL/IPRATROPRIUM SOLN, INHL [Concomitant]
  3. FUROSEMIDE [Concomitant]
  4. COUMADIN [Concomitant]
  5. MILK OF MAGNESIA TAB [Concomitant]
  6. ACETAMINOPHEN W/ PROPOXYPHENE HCL [Concomitant]
  7. PROSHIELD PLUS SKIN PROTECTANT TOP GEL [Concomitant]
  8. SYNTHROID [Concomitant]
  9. METOPROLOL TARTRATE [Concomitant]
  10. ACETAMINOPHEN [Concomitant]
  11. DOPAMINE HCL [Concomitant]
  12. CEFTAZIDIME [Concomitant]
  13. CLINDAMYCIN PHOSPHATE [Concomitant]

REACTIONS (1)
  - PNEUMONITIS [None]
